FAERS Safety Report 7122898-9 (Version None)
Quarter: 2010Q4

REPORT INFORMATION
  Report Type: 
  Country: None (occurrence: None)
  Receive Date: 20101124
  Receipt Date: 20101025
  Transmission Date: 20110411
  Serious: Yes (Hospitalization, Other)
  Sender: FDA-Public Use
  Company Number: GB-AMGEN-GBRCT2010001713

PATIENT

DRUGS (10)
  1. ETANERCEPT [Suspect]
     Indication: RHEUMATOID ARTHRITIS
     Dosage: 25 MG, 2 TIMES/WK
     Dates: start: 20040615
  2. METHOTREXATE [Concomitant]
     Dosage: UNKNOWN
     Dates: start: 20030509
  3. PREDNISOLONE [Concomitant]
     Dosage: UNKNOWN
  4. AMLODIPINE [Concomitant]
     Dosage: UNKNOWN
  5. LEVOTHYROXINE SODIUM [Concomitant]
     Dosage: UNKNOWN
  6. BENDROFLUAZIDE [Concomitant]
     Dosage: UNKNOWN
  7. FOLIC ACID [Concomitant]
     Dosage: UNKNOWN
  8. PRILOSEC [Concomitant]
     Dosage: UNKNOWN
  9. PARACETAMOL [Concomitant]
     Dosage: UNKNOWN
  10. ATORVASTATIN [Concomitant]
     Dosage: UNKNOWN

REACTIONS (3)
  - CONDITION AGGRAVATED [None]
  - LOWER RESPIRATORY TRACT INFECTION [None]
  - RHEUMATOID ARTHRITIS [None]
